FAERS Safety Report 16807721 (Version 3)
Quarter: 2019Q4

REPORT INFORMATION
  Report Type: Spontaneous
  Country: GB (occurrence: GB)
  Receive Date: 20190915
  Receipt Date: 20191208
  Transmission Date: 20200122
  Serious: Yes (Hospitalization, Other)
  Sender: FDA-Public Use
  Company Number: GB-DEXPHARM-20190717

PATIENT
  Age: 53 Year
  Sex: Male
  Weight: 97 kg

DRUGS (16)
  1. CLOZARIL [Interacting]
     Active Substance: CLOZAPINE
     Indication: SCHIZOPHRENIA
     Dosage: 125 MG, PM
     Route: 048
     Dates: start: 19960410
  2. BECLOMETHASONE QVAR [Concomitant]
     Indication: CHRONIC OBSTRUCTIVE PULMONARY DISEASE
  3. OMEPRAZOLE. [Suspect]
     Active Substance: OMEPRAZOLE
     Indication: GASTROOESOPHAGEAL REFLUX DISEASE
     Route: 048
     Dates: start: 201812, end: 201908
  4. METFORMIN [Concomitant]
     Active Substance: METFORMIN HYDROCHLORIDE
  5. BISOPROLOL [Concomitant]
     Active Substance: BISOPROLOL
  6. ATROPINE. [Concomitant]
     Active Substance: ATROPINE
  7. OMEPRAZOLE. [Interacting]
     Active Substance: OMEPRAZOLE
     Indication: GASTROOESOPHAGEAL REFLUX DISEASE
     Route: 048
     Dates: end: 201812
  8. FINASTERIDE. [Concomitant]
     Active Substance: FINASTERIDE
  9. PIOGLITAZONE. [Concomitant]
     Active Substance: PIOGLITAZONE
  10. CLOZARIL [Suspect]
     Active Substance: CLOZAPINE
     Indication: SCHIZOPHRENIA
     Dosage: 75 MG, AM
     Route: 048
     Dates: start: 19960410
  11. EXENATIDE. [Concomitant]
     Active Substance: EXENATIDE
  12. APIXABAN [Concomitant]
     Active Substance: APIXABAN
  13. FYBOGEL [Concomitant]
     Active Substance: PLANTAGO OVATA SEED
  14. PARACETAMOL [Concomitant]
     Active Substance: ACETAMINOPHEN
     Indication: BACK PAIN
     Route: 048
     Dates: start: 201705
  15. ALGINATES [Concomitant]
  16. FEROUS FUNARATE [Concomitant]

REACTIONS (13)
  - Blood triglycerides increased [Unknown]
  - Benign prostatic hyperplasia [Unknown]
  - Adverse event [Unknown]
  - Insulin-requiring type 2 diabetes mellitus [Unknown]
  - Anaemia [Unknown]
  - Cerebrovascular accident [Unknown]
  - Pulmonary embolism [Recovered/Resolved]
  - Drug interaction [Unknown]
  - Tachycardia [Unknown]
  - Blood cholesterol abnormal [Unknown]
  - Antipsychotic drug level increased [Unknown]
  - Salivary hypersecretion [Unknown]
  - Pancreatitis [Unknown]

NARRATIVE: CASE EVENT DATE: 1999
